FAERS Safety Report 7168195-7 (Version None)
Quarter: 2010Q4

REPORT INFORMATION
  Report Type: 
  Country: None (occurrence: None)
  Receive Date: 20101216
  Receipt Date: 20101208
  Transmission Date: 20110411
  Serious: Yes (Other)
  Sender: FDA-Public Use
  Company Number: FR-PFIZER INC-2010166693

PATIENT
  Age: 84 Year
  Sex: Female

DRUGS (14)
  1. LYRICA [Suspect]
     Dosage: UNK
     Route: 048
     Dates: end: 20101104
  2. ROVAMYCINE [Suspect]
     Dosage: UNK
     Route: 048
     Dates: end: 20101104
  3. TAHOR [Concomitant]
  4. SPIRIVA [Concomitant]
  5. CORDARONE [Concomitant]
     Dosage: UNK
     Dates: end: 20101108
  6. DOMPERIDONE [Concomitant]
  7. LEVOTHYROX [Concomitant]
  8. TRIATEC [Concomitant]
  9. PREVISCAN [Concomitant]
  10. DAFALGAN [Concomitant]
  11. ACETAMINOPHEN W/ PROPOXYPHENE HCL [Concomitant]
  12. AERIUS [Concomitant]
  13. SYMBICORT TURBUHALER ^ASTRAZENECA^ [Concomitant]
  14. RILMENIDINE [Concomitant]

REACTIONS (7)
  - ACUTE PULMONARY OEDEMA [None]
  - ACUTE RESPIRATORY FAILURE [None]
  - BLOOD POTASSIUM DECREASED [None]
  - BRADYCARDIA [None]
  - ELECTROCARDIOGRAM QT PROLONGED [None]
  - LUNG DISORDER [None]
  - RESPIRATORY ACIDOSIS [None]
